FAERS Safety Report 18985208 (Version 1)
Quarter: 2021Q1

REPORT INFORMATION
  Report Type: Spontaneous
  Country: US (occurrence: US)
  Receive Date: 20210309
  Receipt Date: 20210309
  Transmission Date: 20210420
  Serious: No
  Sender: FDA-Public Use
  Company Number: US-SA-2021SA077688

PATIENT
  Age: 14 Year
  Sex: Female

DRUGS (1)
  1. DUPIXENT [Suspect]
     Active Substance: DUPILUMAB
     Indication: NEURODERMATITIS
     Dosage: 300MG, QOW
     Route: 058
     Dates: start: 202101

REACTIONS (3)
  - Product use issue [Unknown]
  - Skin exfoliation [Recovering/Resolving]
  - Pruritus [Not Recovered/Not Resolved]

NARRATIVE: CASE EVENT DATE: 202101
